FAERS Safety Report 10693335 (Version 1)
Quarter: 2015Q1

REPORT INFORMATION
  Report Type: Spontaneous
  Country: FR (occurrence: FR)
  Receive Date: 20150106
  Receipt Date: 20150106
  Transmission Date: 20150720
  Serious: Yes (Hospitalization)
  Sender: FDA-Public Use
  Company Number: FR-SA-2015SA000229

PATIENT
  Age: 104 Year
  Sex: Female

DRUGS (9)
  1. ALDACTAZINE [Suspect]
     Active Substance: ALTHIAZIDE\SPIRONOLACTONE
     Route: 048
     Dates: end: 20140924
  2. LASILIX [Suspect]
     Active Substance: FUROSEMIDE
     Route: 048
     Dates: start: 20141001
  3. CELIPROLOL [Concomitant]
     Active Substance: CELIPROLOL
  4. SMECTA [Concomitant]
     Active Substance: MONTMORILLONITE
  5. LASILIX [Suspect]
     Active Substance: FUROSEMIDE
     Route: 048
     Dates: end: 20140924
  6. LASILIX [Suspect]
     Active Substance: FUROSEMIDE
     Route: 048
     Dates: start: 20141003
  7. PAROXETINE [Suspect]
     Active Substance: PAROXETINE\PAROXETINE HYDROCHLORIDE
     Route: 048
     Dates: end: 20141003
  8. MOLSIDOMINE [Concomitant]
     Active Substance: MOLSIDOMINE
  9. ESBERIVEN FORTE [Concomitant]

REACTIONS (5)
  - Oliguria [Recovered/Resolved]
  - Hyponatraemia [Recovered/Resolved]
  - Hypokalaemia [Recovered/Resolved]
  - Dehydration [Recovered/Resolved]
  - Confusional state [Recovered/Resolved]

NARRATIVE: CASE EVENT DATE: 201409
